FAERS Safety Report 7810824-6 (Version None)
Quarter: 2011Q4

REPORT INFORMATION
  Report Type: 
  Country: None (occurrence: None)
  Receive Date: 20111012
  Receipt Date: 20111012
  Transmission Date: 20120403
  Serious: No
  Sender: FDA-Public Use
  Company Number: None

PATIENT
  Sex: Female

DRUGS (2)
  1. COPAXONE [Suspect]
  2. COPAXONE [Suspect]
     Indication: MULTIPLE SCLEROSIS
     Dosage: COPAXONE 20 MG ONCE DAILY SUB-Q
     Route: 058
     Dates: start: 20110120

REACTIONS (2)
  - SINUSITIS [None]
  - EAR INFECTION [None]
